FAERS Safety Report 7858321 (Version 3)
Quarter: 2013Q1

REPORT INFORMATION
  Report Type: Spontaneous
  Country: US (occurrence: US)
  Receive Date: 20110316
  Receipt Date: 20130104
  Transmission Date: 20140127
  Serious: Yes (Hospitalization)
  Sender: FDA-Public Use
  Company Number: US-ASTRAZENECA-2011SE13144

PATIENT
  Age: 50 Year
  Sex: Male

DRUGS (2)
  1. SEROQUEL [Suspect]
     Route: 048
  2. ATACAND [Suspect]
     Route: 048

REACTIONS (3)
  - Psychotic disorder [Unknown]
  - Bipolar disorder [Unknown]
  - Intentional drug misuse [Unknown]
